FAERS Safety Report 9096595 (Version 1)
Quarter: 2013Q1

REPORT INFORMATION
  Report Type: Spontaneous
  Country: DE (occurrence: None)
  Receive Date: 20130128
  Receipt Date: 20130128
  Transmission Date: 20140127
  Serious: Yes (Other)
  Sender: FDA-Public Use
  Company Number: 2013-00616

PATIENT
  Age: 30 Year
  Sex: Female
  Weight: 60 kg

DRUGS (1)
  1. CITALOPRAM HYDROBROMIDE (UNKNOWN) (CITALOPRAM HYDROBROMIDE) UNK, UNKUNK [Suspect]
     Indication: DEPRESSION
     Dosage: ^20^,  ORAL?02/--/2002  TO  11/--/2012
     Route: 048
     Dates: start: 200202, end: 201211

REACTIONS (8)
  - Gastrointestinal pain [None]
  - Withdrawal syndrome [None]
  - Headache [None]
  - Panic attack [None]
  - Nervousness [None]
  - Tachycardia [None]
  - Dizziness [None]
  - Palpitations [None]
